FAERS Safety Report 9613606 (Version 1)
Quarter: 2013Q4

REPORT INFORMATION
  Report Type: Spontaneous
  Country: NL (occurrence: None)
  Receive Date: 20131008
  Receipt Date: 20131008
  Transmission Date: 20140711
  Serious: Yes (Other)
  Sender: FDA-Public Use
  Company Number: VAL_02762_2013

PATIENT
  Age: 24 Year
  Sex: Female

DRUGS (1)
  1. BROMOCRIPTINE [Suspect]
     Indication: BREAST ENLARGEMENT
     Dosage: (REGIMEN #1; FOR THE REMAINDER OF THE PREGNANCY)

REACTIONS (14)
  - Exposure during pregnancy [None]
  - Drug ineffective [None]
  - General physical health deterioration [None]
  - Bedridden [None]
  - Dyspnoea exertional [None]
  - Orthostatic hypotension [None]
  - Cyanosis [None]
  - Paraesthesia [None]
  - Breast ulceration [None]
  - Skin irritation [None]
  - Breast hyperplasia [None]
  - Blood pressure decreased [None]
  - Anaemia [None]
  - Premature labour [None]
